FAERS Safety Report 14733410 (Version 1)
Quarter: 2018Q2

REPORT INFORMATION
  Report Type: Report from Study
  Country: US (occurrence: US)
  Receive Date: 20180409
  Receipt Date: 20180409
  Transmission Date: 20180711
  Serious: Yes (Hospitalization, Other)
  Sender: FDA-Public Use
  Company Number: US-ROCHE-2099494

PATIENT
  Age: 38 Year
  Sex: Female
  Weight: 131.66 kg

DRUGS (1)
  1. OCREVUS [Suspect]
     Active Substance: OCRELIZUMAB
     Indication: PRIMARY PROGRESSIVE MULTIPLE SCLEROSIS
     Route: 065
     Dates: start: 201710

REACTIONS (15)
  - B-lymphocyte count decreased [Unknown]
  - Immunosuppression [Unknown]
  - Nerve injury [Not Recovered/Not Resolved]
  - Multiple sclerosis relapse [Recovered/Resolved]
  - Acne [Recovered/Resolved]
  - Swelling [Recovered/Resolved]
  - Skin exfoliation [Unknown]
  - Escherichia infection [Recovered/Resolved]
  - Joint swelling [Recovered/Resolved]
  - Wound complication [Unknown]
  - Necrotising fasciitis [Recovered/Resolved]
  - Staphylococcal infection [Recovered/Resolved]
  - Cellulitis [Recovered/Resolved]
  - Abdominal distension [Recovered/Resolved]
  - Sensory loss [Not Recovered/Not Resolved]

NARRATIVE: CASE EVENT DATE: 201801
